FAERS Safety Report 15336336 (Version 2)
Quarter: 2018Q3

REPORT INFORMATION
  Report Type: Spontaneous
  Country: IT (occurrence: IT)
  Receive Date: 20180830
  Receipt Date: 20180904
  Transmission Date: 20181010
  Serious: Yes (Hospitalization)
  Sender: FDA-Public Use
  Company Number: IT-ALLERGAN-1841709US

PATIENT
  Age: 30 Year
  Sex: Male

DRUGS (1)
  1. MESALAZINE UNK [Suspect]
     Active Substance: MESALAMINE
     Indication: PRODUCT USED FOR UNKNOWN INDICATION
     Dosage: 3 G, QD
     Route: 065

REACTIONS (1)
  - Rectal haemorrhage [Recovering/Resolving]

NARRATIVE: CASE EVENT DATE: 20180611
